FAERS Safety Report 6444855-8 (Version None)
Quarter: 2009Q4

REPORT INFORMATION
  Report Type: 
  Country: None (occurrence: None)
  Receive Date: 20091110
  Receipt Date: 20090922
  Transmission Date: 20100525
  Serious: No
  Sender: FDA-Public Use
  Company Number: 1000009018

PATIENT
  Sex: Female

DRUGS (4)
  1. SAVELLA [Suspect]
     Dosage: 1SEE IMAGE
     Route: 048
     Dates: start: 20090910, end: 20090910
  2. SAVELLA [Suspect]
     Dosage: 1SEE IMAGE
     Route: 048
     Dates: start: 20090911, end: 20090912
  3. SAVELLA [Suspect]
     Dosage: 1SEE IMAGE
     Route: 048
     Dates: start: 20090913, end: 20090916
  4. SAVELLA [Suspect]
     Dosage: 1SEE IMAGE
     Route: 048
     Dates: start: 20090917

REACTIONS (1)
  - ADVERSE DRUG REACTION [None]
